FAERS Safety Report 20618382 (Version 7)
Quarter: 2022Q2

REPORT INFORMATION
  Report Type: Report from Study
  Country: US (occurrence: US)
  Receive Date: 20220321
  Receipt Date: 20220622
  Transmission Date: 20220721
  Serious: Yes (Other)
  Sender: FDA-Public Use
  Company Number: US-NOVARTISTESTPH-NVSC2022US060010

PATIENT
  Sex: Female

DRUGS (1)
  1. KISQALI [Suspect]
     Active Substance: RIBOCICLIB
     Indication: Breast cancer
     Dosage: 600 MG, QD
     Route: 048
     Dates: start: 202202

REACTIONS (12)
  - Metastases to liver [Unknown]
  - Night sweats [Unknown]
  - Nervousness [Unknown]
  - Hypotension [Unknown]
  - Illness [Unknown]
  - Hypophagia [Unknown]
  - Nausea [Unknown]
  - Vomiting [Unknown]
  - Dizziness [Unknown]
  - Cough [Unknown]
  - Diarrhoea [Unknown]
  - Drug ineffective [Unknown]
